FAERS Safety Report 9149224 (Version 2)
Quarter: 2013Q2

REPORT INFORMATION
  Report Type: Spontaneous
  Country: US (occurrence: US)
  Receive Date: 20130308
  Receipt Date: 20130621
  Transmission Date: 20140414
  Serious: No
  Sender: FDA-Public Use
  Company Number: US-PFIZER INC-2013077195

PATIENT
  Age: 62 Year
  Sex: Female
  Weight: 118 kg

DRUGS (6)
  1. ARTHROTEC [Suspect]
     Indication: ARTHRITIS
     Dosage: UNK, 2X/DAY
     Route: 048
     Dates: start: 201301, end: 201302
  2. ARTHROTEC [Suspect]
     Dosage: 200MCG/50MG, TWO TIMES A DAY
     Route: 048
     Dates: start: 201302, end: 201306
  3. METFORMIN [Concomitant]
     Indication: DIABETES MELLITUS
     Dosage: 1000 MG, 2X/DAY
  4. LEVOTHYROXINE [Concomitant]
     Indication: HYPOTHYROIDISM
     Dosage: 1.25 MG, 1X/DAY
  5. BENICAR [Concomitant]
     Indication: HYPERTENSION
     Dosage: 20 MG, UNK
  6. MELOXICAM [Concomitant]
     Dosage: UNK, 1X/DAY

REACTIONS (6)
  - Bronchitis [Recovering/Resolving]
  - Upper respiratory tract infection [Recovering/Resolving]
  - Arthralgia [Unknown]
  - Malaise [Unknown]
  - Pain [Unknown]
  - Insomnia [Unknown]
